FAERS Safety Report 5359555-5 (Version None)
Quarter: 2007Q2

REPORT INFORMATION
  Report Type: 
  Country: None (occurrence: None)
  Receive Date: 20070615
  Receipt Date: 20070605
  Transmission Date: 20071010
  Serious: Yes (Other)
  Sender: FDA-Public Use
  Company Number: NL-PFIZER INC-2007047318

PATIENT
  Sex: Male

DRUGS (4)
  1. LIPITOR [Suspect]
     Indication: HYPERCHOLESTEROLAEMIA
     Route: 048
  2. SEROXAT ^SMITH KLINE BEECHAM^ [Concomitant]
     Route: 048
  3. AVANDIA [Concomitant]
     Route: 048
  4. MIXTARD HUMAN 70/30 [Concomitant]
     Route: 058

REACTIONS (1)
  - SYNCOPE [None]
